FAERS Safety Report 25913935 (Version 1)
Quarter: 2025Q4

REPORT INFORMATION
  Report Type: Report from Study
  Country: JP (occurrence: JP)
  Receive Date: 20251013
  Receipt Date: 20251013
  Transmission Date: 20260118
  Serious: Yes (Other)
  Sender: ALEXION PHARMACEUTICALS
  Company Number: JP-ASTRAZENECA-202509JPN025475JP

PATIENT
  Age: 76 Year
  Sex: Male

DRUGS (9)
  1. ULTOMIRIS [Suspect]
     Active Substance: RAVULIZUMAB-CWVZ
     Indication: Paroxysmal nocturnal haemoglobinuria
     Dosage: 3000 MG ADMINISTERED ONCE/8 WEEKS.
     Dates: start: 20210413, end: 20241224
  2. DANICOPAN [Suspect]
     Active Substance: DANICOPAN
     Indication: Paroxysmal nocturnal haemoglobinuria
     Dosage: UNK
  3. DANICOPAN [Suspect]
     Active Substance: DANICOPAN
     Dosage: 450 MILLIGRAM
     Dates: start: 20240717, end: 20240916
  4. DANICOPAN [Suspect]
     Active Substance: DANICOPAN
     Dosage: 600 MILLIGRAM
     Dates: start: 20240917, end: 20241028
  5. DANICOPAN [Suspect]
     Active Substance: DANICOPAN
     Dosage: 450 MILLIGRAM
     Dates: start: 20241029, end: 20241111
  6. DANICOPAN [Suspect]
     Active Substance: DANICOPAN
     Dosage: 600 MILLIGRAM
     Dates: start: 20241112, end: 20250303
  7. DANICOPAN [Suspect]
     Active Substance: DANICOPAN
     Dosage: 600 MILLIGRAM
  8. PIASKY [Concomitant]
     Active Substance: CROVALIMAB-AKKZ
     Dosage: 680 MILLIGRAM, QMONTH
     Dates: start: 20250218
  9. ROMIPLOSTIM [Concomitant]
     Active Substance: ROMIPLOSTIM
     Indication: Prophylaxis
     Dosage: UNK

REACTIONS (2)
  - Type III immune complex mediated reaction [Recovered/Resolved]
  - Haemolysis [Recovered/Resolved]

NARRATIVE: CASE EVENT DATE: 20250304
